FAERS Safety Report 17357439 (Version 1)
Quarter: 2020Q1

REPORT INFORMATION
  Report Type: Spontaneous
  Country: IT (occurrence: IT)
  Receive Date: 20200131
  Receipt Date: 20200131
  Transmission Date: 20200409
  Serious: Yes (Other)
  Sender: FDA-Public Use
  Company Number: IT-ALLERGAN-2003856US

PATIENT
  Sex: Male

DRUGS (5)
  1. ASACOL [Suspect]
     Active Substance: MESALAMINE
     Indication: COLITIS ULCERATIVE
     Dosage: 1 DF, Q2WEEKS
     Route: 054
  2. BENTELAN [Concomitant]
     Active Substance: BETAMETHASONE SODIUM PHOSPHATE
     Indication: COLITIS ULCERATIVE
     Dosage: 1 MG TO BE DISSOLVED IN ENEMA
     Route: 054
     Dates: start: 20191101, end: 20191130
  3. ASACOL [Concomitant]
     Active Substance: MESALAMINE
     Indication: COLITIS ULCERATIVE
     Dosage: UNK
     Route: 054
     Dates: start: 20191101, end: 20191130
  4. MESALAZINE UNK [Suspect]
     Active Substance: MESALAMINE
     Indication: COLITIS ULCERATIVE
     Dosage: 800 MG, QID
     Dates: start: 2019
  5. DELTACORTENE [Suspect]
     Active Substance: PREDNISONE
     Indication: COLITIS ULCERATIVE
     Dosage: 50 MG, QD
     Dates: start: 20191217

REACTIONS (10)
  - Flatulence [Not Recovered/Not Resolved]
  - Nervousness [Unknown]
  - Fluid retention [Unknown]
  - Diarrhoea [Not Recovered/Not Resolved]
  - Tachycardia [Unknown]
  - Haematochezia [Not Recovered/Not Resolved]
  - Rectal tenesmus [Not Recovered/Not Resolved]
  - Increased appetite [Unknown]
  - Visual impairment [Unknown]
  - Anal incontinence [Not Recovered/Not Resolved]

NARRATIVE: CASE EVENT DATE: 20190922
